FAERS Safety Report 20580305 (Version 6)
Quarter: 2025Q2

REPORT INFORMATION
  Report Type: Spontaneous
  Country: IT (occurrence: IT)
  Receive Date: 20220310
  Receipt Date: 20250619
  Transmission Date: 20250716
  Serious: Yes (Other)
  Sender: AUROBINDO
  Company Number: IT-MENARINI-IT-MEN-081512

PATIENT
  Age: 61 Year
  Sex: Male

DRUGS (17)
  1. RASAGILINE MESYLATE [Suspect]
     Active Substance: RASAGILINE MESYLATE
     Indication: Parkinson^s disease
     Dosage: 1 MILLIGRAM, ONCE A DAY
     Route: 048
  2. CABERGOLINE [Concomitant]
     Active Substance: CABERGOLINE
     Indication: Product used for unknown indication
     Route: 065
  3. CARBIDOPA [Concomitant]
     Active Substance: CARBIDOPA
     Indication: Parkinson^s disease
     Dosage: UNK, ONCE A DAY (UNK, BID (100/25 TWO TIMES PER DAY) )
     Route: 065
  4. CARBIDOPA LEVODOPA [Concomitant]
     Active Substance: CARBIDOPA\LEVODOPA
     Indication: Parkinson^s disease
     Dosage: 1 DOSAGE FORM, ONCE A DAY(GRADUALLY INTRODUCED UNTIL.)
     Route: 065
  5. CARBIDOPA LEVODOPA [Concomitant]
     Active Substance: CARBIDOPA\LEVODOPA
     Dosage: 1 DOSAGE FORM, ONCE A DAY(PROGRESSIVELY INCREASED)
     Route: 065
  6. CARBIDOPA LEVODOPA [Concomitant]
     Active Substance: CARBIDOPA\LEVODOPA
     Dosage: 1 DOSAGE FORM, ONCE A DAY(PROGRESSIVELY INCREASED TO )
     Route: 065
  7. CARBIDOPA LEVODOPA [Concomitant]
     Active Substance: CARBIDOPA\LEVODOPA
     Route: 065
  8. CARBIDOPA LEVODOPA [Concomitant]
     Active Substance: CARBIDOPA\LEVODOPA
     Route: 065
  9. CARBIDOPA LEVODOPA [Concomitant]
     Active Substance: CARBIDOPA\LEVODOPA
     Route: 065
  10. Carbidopa;Melevodopa [Concomitant]
     Indication: Parkinson^s disease
     Dosage: 1 DOSAGE FORM, ONCE A DAY
     Route: 065
  11. Carbidopa;Melevodopa [Concomitant]
     Dosage: UNK UNK, TWO TIMES A DAY
     Route: 065
  12. CLONAZEPAM [Concomitant]
     Active Substance: CLONAZEPAM
     Indication: Rapid eye movement sleep behaviour disorder
     Route: 065
  13. CLONAZEPAM [Concomitant]
     Active Substance: CLONAZEPAM
     Indication: Insomnia
  14. MELEVODOPA [Concomitant]
     Active Substance: MELEVODOPA
     Indication: Parkinson^s disease
     Dosage: UNK, ONCE A DAY (UNK, BID (TWO TIMES PER DAY) )
     Route: 065
  15. PRAMIPEXOLE [Concomitant]
     Active Substance: PRAMIPEXOLE
     Indication: Parkinson^s disease
     Dosage: 1.05 MILLIGRAM, ONCE A DAY
     Route: 048
  16. TRAZODONE [Concomitant]
     Active Substance: TRAZODONE HYDROCHLORIDE
     Indication: Rapid eye movement sleep behaviour disorder
     Route: 065
  17. TRAZODONE [Concomitant]
     Active Substance: TRAZODONE HYDROCHLORIDE
     Indication: Insomnia

REACTIONS (13)
  - Withdrawal syndrome [Recovered/Resolved]
  - Dysphoria [Recovered/Resolved]
  - Fatigue [Recovered/Resolved]
  - Depression [Recovered/Resolved]
  - Pain [Recovered/Resolved]
  - Agitation [Recovered/Resolved]
  - Aggression [Recovered/Resolved]
  - Anxiety [Recovered/Resolved]
  - Muscle rigidity [Recovered/Resolved]
  - Drug withdrawal syndrome [Recovering/Resolving]
  - Insomnia [Recovered/Resolved]
  - On and off phenomenon [Recovering/Resolving]
  - Rapid eye movement sleep behaviour disorder [Recovered/Resolved]
